FAERS Safety Report 6218588-7 (Version None)
Quarter: 2009Q2

REPORT INFORMATION
  Report Type: 
  Country: None (occurrence: None)
  Receive Date: 20090608
  Receipt Date: 20090601
  Transmission Date: 20091009
  Serious: Yes (Death, Hospitalization)
  Sender: FDA-Public Use
  Company Number: IN-KINGPHARMUSA00001-K200900662

PATIENT
  Age: 7 Year
  Sex: Male

DRUGS (1)
  1. BICILLIN L-A [Suspect]
     Route: 030

REACTIONS (19)
  - ABDOMINAL TENDERNESS [None]
  - CARDIO-RESPIRATORY ARREST [None]
  - COMPARTMENT SYNDROME [None]
  - CONVULSION [None]
  - EMBOLIA CUTIS MEDICAMENTOSA [None]
  - HYPERKALAEMIA [None]
  - INJECTION SITE PAIN [None]
  - LIVIDITY [None]
  - METABOLIC ACIDOSIS [None]
  - MONOPLEGIA [None]
  - MUSCLE TIGHTNESS [None]
  - NECROTISING FASCIITIS [None]
  - PERIPHERAL COLDNESS [None]
  - PULSE ABSENT [None]
  - RENAL FAILURE ACUTE [None]
  - RESPIRATORY ALKALOSIS [None]
  - STUPOR [None]
  - THERAPEUTIC EMBOLISATION [None]
  - URINE OUTPUT DECREASED [None]
